FAERS Safety Report 4922642-7 (Version None)
Quarter: 2006Q1

REPORT INFORMATION
  Report Type: 
  Country: None (occurrence: None)
  Receive Date: 20060224
  Receipt Date: 20060123
  Transmission Date: 20060701
  Serious: Yes (Death)
  Sender: FDA-Public Use
  Company Number: YU-NOVOPROD-250261

PATIENT
  Age: 35 Year
  Sex: Male
  Weight: 70 kg

DRUGS (2)
  1. ACTRAPID NOVOLET [Suspect]
     Indication: DIABETES MELLITUS INSULIN-DEPENDENT
     Dosage: 36 IU, QD
     Route: 058
     Dates: start: 20040719
  2. LANTUS [Suspect]
     Indication: DIABETES MELLITUS INSULIN-DEPENDENT
     Dosage: 22 IU, QD
     Route: 058
     Dates: start: 20051206

REACTIONS (4)
  - CARDIAC ARREST [None]
  - DIABETES MELLITUS INADEQUATE CONTROL [None]
  - MYOCARDIAL INFARCTION [None]
  - URINARY TRACT INFECTION ENTEROCOCCAL [None]
